FAERS Safety Report 10217240 (Version 1)
Quarter: 2014Q2

REPORT INFORMATION
  Report Type: Spontaneous
  Country: JP (occurrence: JP)
  Receive Date: 20140604
  Receipt Date: 20140604
  Transmission Date: 20141212
  Serious: Yes (Other)
  Sender: FDA-Public Use
  Company Number: JP-TEVA-485606ISR

PATIENT
  Age: 30 Year
  Sex: Female

DRUGS (17)
  1. FILGRASTIM BS INJ. ^NK^ [Suspect]
     Indication: NEUTROPENIA
     Dosage: 75 MICROGRAM/M2 DAILY;
     Route: 058
     Dates: start: 20131129, end: 20131201
  2. FILGRASTIM BS INJ. ^NK^ [Suspect]
     Dosage: 300 MICROGRAM/M2 DAILY;
     Dates: start: 20131203, end: 20131206
  3. FILGRASTIM BS INJ. ^NK^ [Suspect]
     Dosage: 75 MICROGRAM/M2 DAILY;
     Route: 058
     Dates: start: 20131212, end: 20131214
  4. FILGRASTIM BS INJ. ^NK^ [Suspect]
     Dosage: 300 MICROGRAM/M2 DAILY;
     Dates: start: 20131218, end: 20131221
  5. FILGRASTIM BS INJ. ^NK^ [Suspect]
     Dosage: 300 MICROGRAM/M2 DAILY;
     Dates: start: 20140110, end: 20140120
  6. FILGRASTIM BS INJ. ^NK^ [Suspect]
     Dosage: 300 MICROGRAM/M2 DAILY;
     Dates: start: 20140127, end: 20140128
  7. METHOTREXATE [Suspect]
     Indication: ACUTE LYMPHOCYTIC LEUKAEMIA
     Dosage: 4200 MILLIGRAM DAILY;
     Route: 042
     Dates: start: 20140122, end: 20140122
  8. ONCOVIN [Concomitant]
     Dosage: 2 MILLIGRAM DAILY;
     Route: 042
     Dates: start: 20131119, end: 20131119
  9. ONCOVIN [Concomitant]
     Dosage: 2 MILLIGRAM DAILY;
     Route: 042
     Dates: start: 20131209, end: 20131209
  10. ONCOVIN [Concomitant]
     Dosage: 2 MILLIGRAM DAILY;
     Route: 042
     Dates: start: 20140122, end: 20140122
  11. DAUNOMYCIN [Concomitant]
     Dosage: 75 MILLIGRAM DAILY;
     Route: 042
     Dates: start: 20131119, end: 20131121
  12. DAUNOMYCIN [Concomitant]
     Dosage: 45 MILLIGRAM DAILY;
     Route: 042
     Dates: start: 20131209, end: 20131210
  13. ENDOXAN [Concomitant]
     Dosage: 1200 MILLIGRAM DAILY;
     Dates: start: 20131119, end: 20131119
  14. ENDOXAN [Concomitant]
     Dosage: 1500 MILLIGRAM DAILY;
     Dates: start: 20131209, end: 20131210
  15. LEUNASE [Concomitant]
     Route: 042
     Dates: start: 20131125, end: 20131202
  16. LEUNASE [Concomitant]
     Route: 042
     Dates: start: 20131216, end: 20131219
  17. CYLOCIDE [Concomitant]
     Dosage: 5600 MILLIGRAM DAILY;
     Route: 042
     Dates: start: 20140107, end: 20140108

REACTIONS (3)
  - Liver disorder [Recovered/Resolved]
  - Aspartate aminotransferase increased [None]
  - Blood lactate dehydrogenase increased [None]
